FAERS Safety Report 10023664 (Version 1)
Quarter: 2014Q1

REPORT INFORMATION
  Report Type: Spontaneous
  Country: US (occurrence: None)
  Receive Date: 20140108
  Receipt Date: 20140108
  Transmission Date: 20141002
  Serious: Yes (Other)
  Sender: FDA-Public Use
  Company Number: 2010S1000415

PATIENT
  Age: 45 Year
  Sex: Female

DRUGS (9)
  1. FLEET PHOSPHO-SODA ORAL SALINE LAXATIVE, GINGER-LEMON FLAVOR [Suspect]
     Indication: COLONOSCOPY
     Dosage: 2 IN 24 HOUR?
     Route: 048
     Dates: start: 2008, end: 2008
  2. GABAPENTIN (GABAPENTIN) [Concomitant]
  3. AMITRIPTYLINE (AMITRIPTYLINE) [Concomitant]
  4. METOCLOPRAMIDE (METOCLOPRAMIDE) [Concomitant]
  5. PROMETHAZINE (PROMETHAZINE) [Concomitant]
  6. OMEPRAZOLE (OMEPRAZOLE) [Concomitant]
  7. CLONIDINE (CLONIDINE) [Concomitant]
  8. HYDROCODONE (HYDROCODONE) [Concomitant]
  9. HUMULIN (INSULIN HUMAN, INSULIN HUMAN INJECTION) [Concomitant]

REACTIONS (2)
  - Renal failure chronic [None]
  - Dialysis [None]
